FAERS Safety Report 7508967-X (Version None)
Quarter: 2011Q2

REPORT INFORMATION
  Report Type: 
  Country: None (occurrence: None)
  Receive Date: 20110527
  Receipt Date: 20110524
  Transmission Date: 20111010
  Serious: No
  Sender: FDA-Public Use
  Company Number: US-PFIZER INC-2011112373

PATIENT
  Sex: Female
  Weight: 60.317 kg

DRUGS (2)
  1. THEOPHYLLINE [Concomitant]
     Dosage: UNK
  2. VFEND [Suspect]
     Indication: BRONCHOPULMONARY ASPERGILLOSIS
     Dosage: 200 MG, UNK
     Route: 048
     Dates: start: 20101101

REACTIONS (4)
  - VOMITING [None]
  - NAUSEA [None]
  - WEIGHT DECREASED [None]
  - MALAISE [None]
